FAERS Safety Report 8614128-3 (Version None)
Quarter: 2012Q3

REPORT INFORMATION
  Report Type: 
  Country: None (occurrence: None)
  Receive Date: 20120823
  Receipt Date: 20120813
  Transmission Date: 20120928
  Serious: Yes (Hospitalization)
  Sender: FDA-Public Use
  Company Number: FR-009507513-1206USA02952

PATIENT

DRUGS (12)
  1. GENTAMICIN [Interacting]
     Dosage: 5 MG/KG, QD
     Route: 042
     Dates: start: 20120506, end: 20120509
  2. AMIKACIN [Interacting]
     Dosage: 1617 MG, QD
     Dates: start: 20120507, end: 20120510
  3. PIPERACILINA TAZOBACTAM RICHET [Interacting]
     Dosage: UNK MG, UNK
     Route: 042
     Dates: start: 20120506, end: 20120509
  4. NEBIVOLOL [Concomitant]
     Dosage: 2.5 MG, QD
  5. ACETAMINOPHEN [Concomitant]
     Dosage: UNK UNK, PRN
  6. PREVISCAN [Concomitant]
     Dates: end: 20120418
  7. TIENAM IV [Suspect]
     Dosage: 500  MG, QID
     Route: 042
     Dates: start: 20120507, end: 20120521
  8. MINISINTROM [Interacting]
     Route: 048
     Dates: start: 20120425
  9. NICARDIPINE HCL [Concomitant]
     Dosage: 50 MG, BID
  10. DIGOXIN [Concomitant]
     Dosage: 0.125 MG, QD
  11. ZOLPIDEM [Concomitant]
     Dosage: 10 MG, QD
  12. VANCOMYCIN HYDROCHLORIDE [Interacting]
     Route: 042
     Dates: start: 20120506, end: 20120508

REACTIONS (3)
  - OVERDOSE [None]
  - DRUG INTERACTION [None]
  - INTERNATIONAL NORMALISED RATIO INCREASED [None]
